FAERS Safety Report 6899253-X (Version None)
Quarter: 2010Q3

REPORT INFORMATION
  Report Type: 
  Country: None (occurrence: None)
  Receive Date: 20100802
  Receipt Date: 20080220
  Transmission Date: 20110219
  Serious: No
  Sender: FDA-Public Use
  Company Number: US-PFIZER INC-2007065594

PATIENT
  Sex: Female
  Weight: 65.77 kg

DRUGS (8)
  1. LYRICA [Suspect]
     Indication: NEUROPATHY PERIPHERAL
     Dates: start: 20070608
  2. NEURONTIN [Suspect]
     Indication: COMPLEX REGIONAL PAIN SYNDROME
     Dates: start: 19960101
  3. ACETYLSALICYLIC ACID SRT [Concomitant]
  4. LORAZEPAM [Concomitant]
  5. VITAMINS [Concomitant]
  6. MINERALS NOS [Concomitant]
  7. ARGININE [Concomitant]
  8. ALL OTHER THERAPEUTIC PRODUCTS [Concomitant]
     Indication: THYROID FUNCTION TEST ABNORMAL

REACTIONS (7)
  - CONSTIPATION [None]
  - DRUG INEFFECTIVE [None]
  - DRY MOUTH [None]
  - EAR PRURITUS [None]
  - ERYTHEMA [None]
  - MYALGIA [None]
  - STOMATITIS [None]
